FAERS Safety Report 7316317-7 (Version None)
Quarter: 2011Q1

REPORT INFORMATION
  Report Type: 
  Country: None (occurrence: None)
  Receive Date: 20110225
  Receipt Date: 20110218
  Transmission Date: 20110831
  Serious: Yes (Other)
  Sender: FDA-Public Use
  Company Number: US-US-EMD SERONO, INC.-7006063

PATIENT
  Sex: Female

DRUGS (1)
  1. REBIF [Suspect]
     Indication: MULTIPLE SCLEROSIS
     Route: 058
     Dates: start: 20081117, end: 20100801

REACTIONS (4)
  - INJECTION SITE PAIN [None]
  - TRANSIENT ISCHAEMIC ATTACK [None]
  - OPEN WOUND [None]
  - DRUG INEFFECTIVE [None]
